FAERS Safety Report 9678148 (Version 1)
Quarter: 2013Q4

REPORT INFORMATION
  Report Type: Spontaneous
  Country: US (occurrence: US)
  Receive Date: 20131108
  Receipt Date: 20131108
  Transmission Date: 20140711
  Serious: No
  Sender: FDA-Public Use
  Company Number: US-009507513-1311USA000851

PATIENT
  Age: 6 Year
  Sex: Female

DRUGS (2)
  1. SINGULAIR [Suspect]
     Dosage: 5 MG, UNK
     Route: 048
  2. FLOVENT [Concomitant]

REACTIONS (2)
  - Irritability [Unknown]
  - Agitation [Unknown]
